FAERS Safety Report 6641534-9 (Version None)
Quarter: 2010Q1

REPORT INFORMATION
  Report Type: 
  Country: None (occurrence: None)
  Receive Date: 20100317
  Receipt Date: 20100317
  Transmission Date: 20100710
  Serious: Yes (Other)
  Sender: FDA-Public Use
  Company Number: None

PATIENT
  Age: 60 Year
  Sex: Male
  Weight: 80.8 kg

DRUGS (10)
  1. HEPARIN [Suspect]
     Indication: THROMBOSIS PROPHYLAXIS
     Dosage: 15UNIT/KG/HR CONTINUOUS INFUSION IV
     Route: 042
     Dates: start: 20091228, end: 20100107
  2. FENTANYL [Concomitant]
  3. AMIODARONE HCL [Concomitant]
  4. ASPIRIN [Concomitant]
  5. CLOPIDOGREL [Concomitant]
  6. LORAZEPAM [Concomitant]
  7. CALCIUM CARBONATE [Concomitant]
  8. PANTOPRAZOLE [Concomitant]
  9. ODANSETRON [Concomitant]
  10. METOCLOPRAMIDE [Concomitant]

REACTIONS (1)
  - HEPARIN-INDUCED THROMBOCYTOPENIA [None]
